FAERS Safety Report 8997805 (Version 1)
Quarter: 2013Q1

REPORT INFORMATION
  Report Type: Spontaneous
  Country: US (occurrence: US)
  Receive Date: 20130104
  Receipt Date: 20130104
  Transmission Date: 20140127
  Serious: Yes (Hospitalization, Other)
  Sender: FDA-Public Use
  Company Number: CHPA2012US025954

PATIENT
  Age: 74 Year
  Sex: Female

DRUGS (3)
  1. EXCEDRIN EXTRA STRENGTH [Suspect]
     Indication: HEADACHE
     Dosage: 2 TO 3 DF, DAILY
     Route: 048
     Dates: start: 1969, end: 1972
  2. ASCRIPTIN [Concomitant]
     Indication: HEADACHE
     Dosage: 1 TO 2 DF, A DAY
  3. ASCRIPTIN [Concomitant]
     Indication: ARTHRITIS

REACTIONS (14)
  - Haemorrhage [Recovered/Resolved]
  - Pain in extremity [Not Recovered/Not Resolved]
  - Fracture [Recovered/Resolved]
  - Fall [Recovered/Resolved]
  - Breast cancer [Recovered/Resolved]
  - Breast mass [Recovered/Resolved]
  - Gastric ulcer haemorrhage [Recovered/Resolved]
  - Spinal osteoarthritis [Not Recovered/Not Resolved]
  - Herpes zoster [Recovered/Resolved]
  - Nerve injury [Recovered/Resolved]
  - Sinus disorder [Not Recovered/Not Resolved]
  - Rhinorrhoea [Not Recovered/Not Resolved]
  - Incorrect dose administered [Unknown]
  - Incorrect drug administration duration [Unknown]
